FAERS Safety Report 4843655-X (Version None)
Quarter: 2005Q4

REPORT INFORMATION
  Report Type: 
  Country: None (occurrence: None)
  Receive Date: 20051202
  Receipt Date: 20051124
  Transmission Date: 20060501
  Serious: Yes (Hospitalization)
  Sender: FDA-Public Use
  Company Number: FR-JNJFOC-20051105755

PATIENT
  Age: 64 Year
  Sex: Male

DRUGS (6)
  1. RISPERDAL [Suspect]
     Route: 048
     Dates: start: 20050902, end: 20051012
  2. RISPERDAL [Suspect]
     Indication: DRUG USE FOR UNKNOWN INDICATION
     Route: 048
     Dates: start: 20050902, end: 20051012
  3. FLUDEX [Concomitant]
  4. LERCAN [Concomitant]
  5. PARKINANE [Concomitant]
  6. LOXAPAC [Concomitant]
     Route: 042

REACTIONS (2)
  - LEUKOPENIA [None]
  - NEUTROPENIA [None]
